FAERS Safety Report 23443064 (Version 6)
Quarter: 2024Q3

REPORT INFORMATION
  Report Type: Report from Study
  Country: AU (occurrence: AU)
  Receive Date: 20240125
  Receipt Date: 20240828
  Transmission Date: 20241017
  Serious: Yes (Death, Hospitalization, Other)
  Sender: NOVARTIS
  Company Number: AU-002147023-NVSC2023AU273769

PATIENT
  Age: 93 Year
  Sex: Female
  Weight: 74.2 kg

DRUGS (9)
  1. FEMARA [Suspect]
     Active Substance: LETROZOLE
     Indication: Hormone receptor positive HER2 negative breast cancer
     Dosage: 2.5 MG, QD (INTERVAL 1)
     Route: 048
     Dates: start: 20190505, end: 20210505
  2. FEMARA [Suspect]
     Active Substance: LETROZOLE
     Dosage: UNK
     Route: 048
     Dates: start: 20210506, end: 20210713
  3. ABEMACICLIB [Suspect]
     Active Substance: ABEMACICLIB
     Indication: Hormone receptor positive HER2 negative breast cancer
     Dosage: 150 MG, BID
     Route: 048
     Dates: start: 20190506, end: 20190731
  4. ABEMACICLIB [Suspect]
     Active Substance: ABEMACICLIB
     Dosage: UNK, BID
     Route: 048
     Dates: start: 20190828, end: 20200428
  5. ABEMACICLIB [Suspect]
     Active Substance: ABEMACICLIB
     Dosage: UNK, BID
     Route: 048
     Dates: start: 20200506, end: 20210505
  6. OSTELIN [Concomitant]
     Indication: Osteopenia
     Dosage: UNK
     Route: 065
     Dates: start: 2017
  7. CARTIA [Concomitant]
     Indication: Hypertension
     Dosage: 100 MG
     Route: 065
     Dates: start: 20190921
  8. DONEPEZIL [Concomitant]
     Active Substance: DONEPEZIL\DONEPEZIL HYDROCHLORIDE
     Indication: Amnesia
     Dosage: UNK
     Route: 065
     Dates: start: 20200610
  9. LETROZOLE [Concomitant]
     Active Substance: LETROZOLE
     Indication: Product used for unknown indication
     Dosage: UNK
     Route: 065
     Dates: start: 20210506

REACTIONS (14)
  - Dementia [Fatal]
  - Pneumonia [Recovered/Resolved]
  - Pyrexia [Unknown]
  - Empyema [Recovered/Resolved]
  - Mental impairment [Unknown]
  - Deep vein thrombosis [Unknown]
  - Atrial fibrillation [Unknown]
  - Delirium [Unknown]
  - Dementia [Recovered/Resolved]
  - Ischaemic stroke [Unknown]
  - Acute kidney injury [Recovered/Resolved]
  - Hypotension [Unknown]
  - Norovirus infection [Unknown]
  - General physical health deterioration [Unknown]

NARRATIVE: CASE EVENT DATE: 20190715
